FAERS Safety Report 22382626 (Version 1)
Quarter: 2023Q2

REPORT INFORMATION
  Report Type: Spontaneous
  Country: US (occurrence: US)
  Receive Date: 20230530
  Receipt Date: 20230530
  Transmission Date: 20230721
  Serious: Yes (Other)
  Sender: FDA-Public Use
  Company Number: US-ROCHE-1313726

PATIENT
  Sex: Male
  Weight: 190 kg

DRUGS (17)
  1. CLONAZEPAM [Suspect]
     Active Substance: CLONAZEPAM
     Indication: Seizure
     Dosage: ORAL CLONAZEPAM TABLET  (FORM STRENGTH: 1 MG) 7 MG A DAY WITH DIVIDED DOSES OF 2 MG TABLET AT 5 A...
     Route: 048
  2. CLONAZEPAM [Suspect]
     Active Substance: CLONAZEPAM
     Indication: Seizure
     Dosage: ON AN UNSPECIFIED DATE, HE ALSO STARTED CLONAZEPAM TABLET 7 MG DAILY AND 6 MG ONCE IN A DAY.
     Route: 048
  3. CLONAZEPAM [Suspect]
     Active Substance: CLONAZEPAM
     Indication: Seizure
     Dosage: ON AN UNSPECIFIED DATE, HE ALSO STARTED CLONAZEPAM TABLET 7 MG DAILY AND 6 MG ONCE IN A DAY.
     Route: 048
  4. RITUXAN [Suspect]
     Active Substance: RITUXIMAB
     Indication: Rheumatoid arthritis
     Dosage: 1 THEN REPEAT 15 DAY 1G INFUSED ON WEEK ONE
     Route: 042
     Dates: start: 20090120
  5. RITUXAN [Suspect]
     Active Substance: RITUXIMAB
     Indication: Stiff person syndrome
     Route: 042
  6. BACLOFEN [Concomitant]
     Active Substance: BACLOFEN
     Indication: Stiff person syndrome
     Dosage: 10 MG AT BEDTIME;?3 TIMES IN 1 DAY
     Route: 048
  7. BACLOFEN [Concomitant]
     Active Substance: BACLOFEN
     Indication: Musculoskeletal stiffness
     Dosage: 10 MG AT BEDTIME;?3 TIMES IN 1 DAY
     Route: 048
  8. BACLOFEN [Concomitant]
     Active Substance: BACLOFEN
     Indication: Stiff person syndrome
     Route: 048
  9. BACLOFEN [Concomitant]
     Active Substance: BACLOFEN
     Indication: Musculoskeletal stiffness
     Route: 048
  10. ZIAC (UNITED STATES) [Concomitant]
     Indication: Hypertension
     Route: 048
  11. ZIAC (UNITED STATES) [Concomitant]
     Indication: Hypertension
  12. TEGRETOL [Concomitant]
     Active Substance: CARBAMAZEPINE
     Indication: Prophylaxis
     Dosage: 2 A DAY TO PREVENT SEIZURES
     Route: 048
  13. CARBATROL [Concomitant]
     Active Substance: CARBAMAZEPINE
     Indication: Seizure
     Dosage: 3 TIMES IN 1 DAY?DAILY DOSE: 600 MILLIGRAM
     Route: 048
     Dates: start: 20080311
  14. BENADRYL [Concomitant]
     Active Substance: DIPHENHYDRAMINE HYDROCHLORIDE
     Route: 048
  15. SOLU-MEDROL [Concomitant]
     Active Substance: METHYLPREDNISOLONE SODIUM SUCCINATE
     Route: 042
  16. TYLENOL [Concomitant]
     Active Substance: ACETAMINOPHEN
     Route: 048
  17. METHOTREXATE [Concomitant]
     Active Substance: METHOTREXATE

REACTIONS (10)
  - Seizure [Not Recovered/Not Resolved]
  - Amnesia [Unknown]
  - Muscle spasms [Not Recovered/Not Resolved]
  - Gait disturbance [Not Recovered/Not Resolved]
  - Fall [Unknown]
  - Therapeutic response shortened [Unknown]
  - Stiff person syndrome [Unknown]
  - Product use in unapproved indication [Unknown]
  - Fall [Unknown]
  - Ill-defined disorder [Not Recovered/Not Resolved]

NARRATIVE: CASE EVENT DATE: 20220101
